FAERS Safety Report 19485966 (Version 1)
Quarter: 2021Q3

REPORT INFORMATION
  Report Type: Spontaneous
  Country: IN (occurrence: IN)
  Receive Date: 20210702
  Receipt Date: 20210702
  Transmission Date: 20211014
  Serious: Yes (Life-Threatening, Hospitalization, Other)
  Sender: FDA-Public Use
  Company Number: IN-ENDO PHARMACEUTICALS INC-2021-009983

PATIENT
  Age: 58 Year
  Sex: Male

DRUGS (2)
  1. ALCOHOL. [Suspect]
     Active Substance: ALCOHOL
     Indication: ALCOHOL USE
     Dosage: 50?60 G, UNKNOWN
     Route: 065
  2. DISULFIRAM. [Suspect]
     Active Substance: DISULFIRAM
     Indication: ALCOHOLISM
     Dosage: 250 MG, UNKNOWN
     Route: 065

REACTIONS (4)
  - Congestive cardiomyopathy [Recovering/Resolving]
  - Cerebral infarction [Recovering/Resolving]
  - Myocardial stunning [Recovering/Resolving]
  - Alcohol intolerance [Recovering/Resolving]
